FAERS Safety Report 19118162 (Version 1)
Quarter: 2021Q2

REPORT INFORMATION
  Report Type: Spontaneous
  Country: ES (occurrence: ES)
  Receive Date: 20210410
  Receipt Date: 20210410
  Transmission Date: 20210717
  Serious: Yes (Death, Hospitalization)
  Sender: FDA-Public Use
  Company Number: ES-009507513-2104ESP001451

PATIENT
  Age: 59 Year
  Sex: Female
  Weight: 76 kg

DRUGS (1)
  1. KEYTRUDA [Suspect]
     Active Substance: PEMBROLIZUMAB
     Indication: LUNG ADENOCARCINOMA
     Route: 042
     Dates: start: 20210125, end: 20210125

REACTIONS (1)
  - Haemolytic anaemia [Fatal]

NARRATIVE: CASE EVENT DATE: 20210203
